FAERS Safety Report 4451626-0 (Version None)
Quarter: 2004Q3

REPORT INFORMATION
  Report Type: 
  Country: None (occurrence: None)
  Receive Date: 20040915
  Receipt Date: 20040830
  Transmission Date: 20050211
  Serious: Yes (Hospitalization)
  Sender: FDA-Public Use
  Company Number: 2004-0007441

PATIENT
  Age: 42 Year
  Sex: Male

DRUGS (3)
  1. VIREAD [Suspect]
     Indication: HIV INFECTION
     Dosage: NI
  2. STAVUDINE [Concomitant]
  3. KALETRA [Concomitant]

REACTIONS (5)
  - HYDRONEPHROSIS [None]
  - MULTIPLE-DRUG RESISTANCE [None]
  - NEPHROLITHIASIS [None]
  - RENAL COLIC [None]
  - ULTRASOUND SCAN ABNORMAL [None]
